FAERS Safety Report 7330631-0 (Version None)
Quarter: 2011Q1

REPORT INFORMATION
  Report Type: 
  Country: None (occurrence: None)
  Receive Date: 20110304
  Receipt Date: 20110225
  Transmission Date: 20110831
  Serious: No
  Sender: FDA-Public Use
  Company Number: US-BIOGENIDEC-2011BI007734

PATIENT
  Age: 58 Year
  Sex: Female

DRUGS (1)
  1. TYSABRI [Suspect]
     Indication: MULTIPLE SCLEROSIS
     Route: 042
     Dates: start: 20100805

REACTIONS (5)
  - MUSCULAR WEAKNESS [None]
  - NEURALGIA [None]
  - HYPOAESTHESIA FACIAL [None]
  - LIMB DISCOMFORT [None]
  - FEELING COLD [None]
